FAERS Safety Report 7500434-2 (Version None)
Quarter: 2011Q2

REPORT INFORMATION
  Report Type: 
  Country: None (occurrence: None)
  Receive Date: 20110524
  Receipt Date: 20110328
  Transmission Date: 20111010
  Serious: No
  Sender: FDA-Public Use
  Company Number: US-BRISTOL-MYERS SQUIBB COMPANY-15615248

PATIENT
  Sex: Male

DRUGS (2)
  1. ONGLYZA [Suspect]
  2. LEVEMIR [Concomitant]
     Dosage: INSULIN LEVEMIR FLEXPEN

REACTIONS (2)
  - DIVERTICULITIS [None]
  - PAIN [None]
